FAERS Safety Report 15115019 (Version 2)
Quarter: 2018Q4

REPORT INFORMATION
  Report Type: Spontaneous
  Country: GB (occurrence: GB)
  Receive Date: 20180706
  Receipt Date: 20181016
  Transmission Date: 20190204
  Serious: Yes (Death, Hospitalization)
  Sender: FDA-Public Use
  Company Number: GB-TEVA-2018-GB-922348

PATIENT
  Age: 88 Year
  Weight: 80 kg

DRUGS (3)
  1. ACETYLSALICYLIC ACID [Suspect]
     Active Substance: ASPIRIN
     Dosage: 75 MILLIGRAM DAILY;
     Route: 048
     Dates: end: 20180519
  2. ESCITALOPRAM [Suspect]
     Active Substance: ESCITALOPRAM OXALATE
     Indication: DEPRESSION
     Dosage: 20 MILLIGRAM DAILY;
     Route: 048
     Dates: end: 20180519
  3. DIHYDROCODEINE [Concomitant]
     Active Substance: DIHYDROCODEINE
     Indication: BACK PAIN
     Dosage: 120 MILLIGRAM DAILY;
     Route: 048

REACTIONS (4)
  - Gastric ulcer haemorrhage [Fatal]
  - Gastrointestinal pain [Fatal]
  - Gastrointestinal haemorrhage [Fatal]
  - Gastric ulcer [Fatal]

NARRATIVE: CASE EVENT DATE: 201805
